FAERS Safety Report 17766795 (Version 1)
Quarter: 2020Q2

REPORT INFORMATION
  Report Type: Report from Study
  Country: US (occurrence: US)
  Receive Date: 20200511
  Receipt Date: 20200511
  Transmission Date: 20200714
  Serious: Yes (Hospitalization)
  Sender: FDA-Public Use
  Company Number: US-EISAI MEDICAL RESEARCH-EC-2020-072122

PATIENT
  Age: 67 Year
  Sex: Female
  Weight: 72.6 kg

DRUGS (25)
  1. KRISTALOSE [Concomitant]
     Active Substance: LACTULOSE
  2. TRAMADOL. [Concomitant]
     Active Substance: TRAMADOL
  3. VITAMIN B COMPLEX [Concomitant]
     Active Substance: CYANOCOBALAMIN\DEXPANTHENOL\NIACINAMIDE\PYRIDOXINE HYDROCHLORIDE\RIBOFLAVIN 5^-PHOSPHATE SODIUM\THIAMINE HYDROCHLORIDE\VITAMIN B COMPLEX
  4. OMEGA 3 [Concomitant]
     Active Substance: OMEGA-3 FATTY ACIDS
  5. LABETALOL [Concomitant]
     Active Substance: LABETALOL\LABETALOL HYDROCHLORIDE
  6. ALPHA LIPOIC ACID [Concomitant]
     Active Substance: .ALPHA.-LIPOIC ACID
  7. MULTI VITAMINS [Concomitant]
     Active Substance: VITAMINS
  8. STOOL SOFTENER (DOCUSATE) [Concomitant]
     Active Substance: DOCUSATE
  9. LENVIMA [Suspect]
     Active Substance: LENVATINIB
     Indication: HEPATOCELLULAR CARCINOMA
     Route: 048
     Dates: start: 202003
  10. AMLODIPINE [Concomitant]
     Active Substance: AMLODIPINE BESYLATE
  11. PROTEIN POWDER [Concomitant]
  12. VITAMIN D3 [Concomitant]
     Active Substance: CHOLECALCIFEROL
  13. KRISTALOSE [Concomitant]
     Active Substance: LACTULOSE
  14. OXYCODONE [Concomitant]
     Active Substance: OXYCODONE
  15. MILK THISTLE [Concomitant]
     Active Substance: DIETARY SUPPLEMENT\HERBALS\MILK THISTLE
  16. VITAMIN C [Concomitant]
     Active Substance: ASCORBIC ACID
  17. MEGESTROL [Concomitant]
     Active Substance: MEGESTROL
  18. SUPER B COMPLEX [Concomitant]
     Active Substance: CYANOCOBALAMIN\DEXPANTHENOL\NIACINAMIDE\PYRIDOXINE HYDROCHLORIDE\RIBOFLAVIN 5^-PHOSPHATE SODIUM\THIAMINE HYDROCHLORIDE\VITAMIN B COMPLEX
  19. VITAMIN E [Concomitant]
     Active Substance: .ALPHA.-TOCOPHEROL
  20. LOSARTAN. [Concomitant]
     Active Substance: LOSARTAN
  21. HYDROCHLOROTHIAZIDE. [Concomitant]
     Active Substance: HYDROCHLOROTHIAZIDE
  22. PROPRANOL [Concomitant]
     Active Substance: PROPRANOLOL HYDROCHLORIDE
  23. ONDANSETRON [Concomitant]
     Active Substance: ONDANSETRON
  24. CLONIDINE. [Concomitant]
     Active Substance: CLONIDINE
  25. EUTHYROX [Concomitant]
     Active Substance: LEVOTHYROXINE SODIUM

REACTIONS (19)
  - Abdominal pain [Unknown]
  - Pyrexia [Unknown]
  - Proteinuria [Unknown]
  - Back pain [Unknown]
  - Constipation [Unknown]
  - Oedema peripheral [Unknown]
  - Hypertension [Unknown]
  - Asthenia [Unknown]
  - Weight decreased [Unknown]
  - Varices oesophageal [Unknown]
  - Dry mouth [Unknown]
  - Nausea [Unknown]
  - Musculoskeletal pain [Unknown]
  - Speech disorder [Unknown]
  - Decreased appetite [Unknown]
  - Thyroid disorder [Unknown]
  - Headache [Unknown]
  - Insomnia [Unknown]
  - Ear pain [Unknown]

NARRATIVE: CASE EVENT DATE: 2020
